FAERS Safety Report 4616005-1 (Version None)
Quarter: 2005Q1

REPORT INFORMATION
  Report Type: 
  Country: None (occurrence: None)
  Receive Date: 20050323
  Receipt Date: 20050310
  Transmission Date: 20050727
  Serious: Yes (Other)
  Sender: FDA-Public Use
  Company Number: US-JNJFOC-20041105410

PATIENT
  Sex: Male
  Weight: 63.5 kg

DRUGS (2)
  1. REMICADE [Suspect]
     Indication: RHEUMATOID ARTHRITIS
     Dosage: 8 DOSES
     Route: 042
  2. PREDNISONE [Concomitant]

REACTIONS (3)
  - GASTROINTESTINAL DISORDER [None]
  - RHEUMATOID ARTHRITIS [None]
  - TUBERCULOSIS [None]
